FAERS Safety Report 16551985 (Version 16)
Quarter: 2021Q1

REPORT INFORMATION
  Report Type: Report from Study
  Country: US (occurrence: US)
  Receive Date: 20190710
  Receipt Date: 20210215
  Transmission Date: 20210419
  Serious: Yes (Hospitalization, Other)
  Sender: FDA-Public Use
  Company Number: PHEH2019US028550

PATIENT
  Age: 49 Year
  Sex: Female
  Weight: 84.81 kg

DRUGS (8)
  1. TREPROSTINIL. [Suspect]
     Active Substance: TREPROSTINIL
     Dosage: UNK, CONT (82 NG/KG/MIN)
     Route: 042
     Dates: start: 20190625
  2. LETAIRIS [Concomitant]
     Active Substance: AMBRISENTAN
     Indication: PRODUCT USED FOR UNKNOWN INDICATION
     Dosage: UNK
     Route: 065
  3. TREPROSTINIL. [Suspect]
     Active Substance: TREPROSTINIL
     Dosage: 82 NG/KG/MIN, CONT
     Route: 042
     Dates: start: 20190625
  4. REMODULIN [Concomitant]
     Active Substance: TREPROSTINIL
     Indication: PRODUCT USED FOR UNKNOWN INDICATION
     Dosage: UNK
     Route: 065
  5. TREPROSTINIL. [Suspect]
     Active Substance: TREPROSTINIL
     Indication: PULMONARY ARTERIAL HYPERTENSION
     Dosage: 78 NG/KG/MIN, CONT
     Route: 042
     Dates: start: 20190625
  6. TREPROSTINIL. [Suspect]
     Active Substance: TREPROSTINIL
     Dosage: 82 NG/KG/MIN, CONT
     Route: 042
  7. AMBRISENTAN [Concomitant]
     Active Substance: AMBRISENTAN
     Indication: PRODUCT USED FOR UNKNOWN INDICATION
     Dosage: 10 UNK, QD
     Route: 048
  8. EPOPROSTENOL TEVA [Concomitant]
     Active Substance: EPOPROSTENOL SODIUM
     Indication: PRODUCT USED FOR UNKNOWN INDICATION
     Dosage: UNK
     Route: 065

REACTIONS (26)
  - Fluid overload [Unknown]
  - Fluid retention [Unknown]
  - Expired product administered [Unknown]
  - Application site vesicles [Unknown]
  - Chest discomfort [Unknown]
  - Viral infection [Unknown]
  - Flushing [Not Recovered/Not Resolved]
  - Dyspnoea [Not Recovered/Not Resolved]
  - Complication associated with device [Unknown]
  - Alopecia [Unknown]
  - Heart rate increased [Not Recovered/Not Resolved]
  - Chest pain [Unknown]
  - Application site irritation [Unknown]
  - Syncope [Unknown]
  - Skin discolouration [Unknown]
  - Dry skin [Unknown]
  - COVID-19 [Unknown]
  - Adverse drug reaction [Unknown]
  - Hyperhidrosis [Not Recovered/Not Resolved]
  - Cardiac failure [Unknown]
  - Malaise [Unknown]
  - Pain in jaw [Not Recovered/Not Resolved]
  - Cold sweat [Not Recovered/Not Resolved]
  - Lung disorder [Unknown]
  - Vascular device infection [Unknown]
  - Oxygen saturation abnormal [Unknown]

NARRATIVE: CASE EVENT DATE: 20191205
